FAERS Safety Report 5535076-1 (Version None)
Quarter: 2007Q4

REPORT INFORMATION
  Report Type: 
  Country: None (occurrence: None)
  Receive Date: 20071203
  Receipt Date: 20071116
  Transmission Date: 20080405
  Serious: Yes (Death, Hospitalization)
  Sender: FDA-Public Use
  Company Number: 2007BI016796

PATIENT
  Age: 58 Year
  Sex: Female
  Weight: 52 kg

DRUGS (16)
  1. AVONEX [Suspect]
     Indication: MULTIPLE SCLEROSIS
     Dosage: QW;IM
     Route: 030
  2. ASPIRIN PLUS EXTENDED-RELEASE DIPYRIDAMOL [Concomitant]
  3. DIGOXIN [Concomitant]
  4. LISINOPRIL [Concomitant]
  5. INSULIN [Concomitant]
  6. LEVOTHYROXINE SODIUM [Concomitant]
  7. LANSOPRAZOLE [Concomitant]
  8. MULTI-VITAMIN [Concomitant]
  9. CALCIUM [Concomitant]
  10. THIAMINE [Concomitant]
  11. PROCHLORPERAZINE [Concomitant]
  12. METOCLOPRAMIDE [Concomitant]
  13. MIDODRINE [Concomitant]
  14. CIPROFLOXACIN [Concomitant]
  15. LIDOCAINE [Concomitant]
  16. MIRTAZAPINE [Concomitant]

REACTIONS (1)
  - NO ADVERSE REACTION [None]
